FAERS Safety Report 8780695 (Version 1)
Quarter: 2012Q4

REPORT INFORMATION
  Report Type: 
  Country: CH (occurrence: CH)
  Receive Date: 20120913
  Receipt Date: 20120913
  Transmission Date: 20130627
  Serious: Yes (Hospitalization)
  Sender: FDA-Public Use
  Company Number: CH-ASTRAZENECA-2012SE69865

PATIENT
  Age: 84 Year
  Sex: Female
  Weight: 60.4 kg

DRUGS (13)
  1. SEQUASE [Suspect]
     Route: 048
  2. CIPRALEX [Suspect]
     Route: 048
  3. TILUR [Suspect]
     Route: 048
     Dates: start: 20120624, end: 20120628
  4. NOVALGIN [Concomitant]
     Route: 048
     Dates: end: 20120628
  5. CALCIMAGON D3 [Concomitant]
     Route: 048
  6. OMEZOL [Concomitant]
     Route: 048
  7. LITHIUM ASPARTATE [Concomitant]
     Route: 048
  8. NEURONTIN [Concomitant]
     Route: 048
  9. REQUIP [Concomitant]
     Route: 048
     Dates: start: 201205
  10. MADOPAR [Concomitant]
     Route: 048
  11. DETRUSITOL [Concomitant]
     Route: 048
  12. MOTILIUM [Concomitant]
     Route: 048
  13. EUTHYROX [Concomitant]
     Route: 048

REACTIONS (7)
  - Hypochromic anaemia [Recovered/Resolved]
  - Haematemesis [Recovered/Resolved]
  - Intestinal ulcer [Recovering/Resolving]
  - Colitis [Recovering/Resolving]
  - Pneumonia [Unknown]
  - Hiatus hernia [Unknown]
  - Gastrooesophageal reflux disease [Unknown]
